FAERS Safety Report 4675278-X (Version None)
Quarter: 2005Q2

REPORT INFORMATION
  Report Type: 
  Country: None (occurrence: None)
  Receive Date: 20050527
  Receipt Date: 20050517
  Transmission Date: 20051028
  Serious: Yes (Hospitalization, Other)
  Sender: FDA-Public Use
  Company Number: US-JNJFOC-20050304929

PATIENT
  Sex: Female
  Weight: 91.17 kg

DRUGS (5)
  1. REMICADE [Suspect]
     Indication: CROHN'S DISEASE
     Route: 042
  2. ENTOCORT [Concomitant]
  3. ENAPRIL [Concomitant]
  4. AVANDIA [Concomitant]
  5. INSULIN [Concomitant]

REACTIONS (2)
  - FISTULA [None]
  - INTESTINAL OBSTRUCTION [None]
